FAERS Safety Report 21501589 (Version 1)
Quarter: 2022Q4

REPORT INFORMATION
  Report Type: Spontaneous
  Country: CN (occurrence: CN)
  Receive Date: 20221025
  Receipt Date: 20221025
  Transmission Date: 20230113
  Serious: Yes (Other)
  Sender: FDA-Public Use
  Company Number: CN-009507513-2210CHN007238

PATIENT
  Age: 53 Year
  Sex: Male

DRUGS (9)
  1. PEMBROLIZUMAB [Suspect]
     Active Substance: PEMBROLIZUMAB
     Indication: Lung squamous cell carcinoma stage IV
     Dosage: 200 MILLIGRAM, D1, Q21 DAYS
     Route: 041
     Dates: start: 20210916, end: 202112
  2. PEMBROLIZUMAB [Suspect]
     Active Substance: PEMBROLIZUMAB
     Dosage: 200 MILLIGRAM, Q21 DAYS
     Route: 041
     Dates: start: 20220110, end: 20220418
  3. PEMBROLIZUMAB [Suspect]
     Active Substance: PEMBROLIZUMAB
     Dosage: 200 MILLIGRAM, Q21 DAYS
     Dates: start: 20220516
  4. DOCETAXEL [Suspect]
     Active Substance: DOCETAXEL
     Indication: Lung squamous cell carcinoma stage IV
     Dosage: 75 MILLIGRAM/SQ. METER,DAY1
     Route: 041
     Dates: start: 20220110, end: 20220418
  5. DOCETAXEL [Suspect]
     Active Substance: DOCETAXEL
     Dosage: 75 MILLIGRAM/SQ. METER,DAY1
     Route: 041
     Dates: start: 20220516
  6. CARBOPLATIN [Suspect]
     Active Substance: CARBOPLATIN
     Indication: Lung squamous cell carcinoma stage IV
     Dosage: AUC: 6 (UNIT UNKNOWN), DAY 1
     Route: 041
     Dates: start: 20210916, end: 20211209
  7. CARBOPLATIN [Suspect]
     Active Substance: CARBOPLATIN
     Dosage: AUC: 6 (UNIT UNKNOWN)
     Route: 041
     Dates: start: 20220110, end: 20220418
  8. CARBOPLATIN [Suspect]
     Active Substance: CARBOPLATIN
     Dosage: AUC: 6 (UNI TUNKNOWN)
     Route: 041
     Dates: start: 20220516
  9. PACLITAXEL [Suspect]
     Active Substance: PACLITAXEL
     Indication: Lung squamous cell carcinoma stage IV
     Dosage: 260 MILLIGRAM/SQ. METER, DAY 1
     Route: 041
     Dates: start: 20210916, end: 20211209

REACTIONS (3)
  - Myelosuppression [Unknown]
  - Therapy non-responder [Unknown]
  - Off label use [Unknown]

NARRATIVE: CASE EVENT DATE: 20210101
